FAERS Safety Report 6231893-3 (Version None)
Quarter: 2009Q2

REPORT INFORMATION
  Report Type: 
  Country: None (occurrence: None)
  Receive Date: 20090616
  Receipt Date: 20090611
  Transmission Date: 20091009
  Serious: Yes (Hospitalization)
  Sender: FDA-Public Use
  Company Number: US-BRISTOL-MYERS SQUIBB COMPANY-14661680

PATIENT
  Age: 82 Year
  Sex: Male

DRUGS (11)
  1. COUMADIN [Suspect]
     Indication: ATRIAL FIBRILLATION
  2. LEXAPRO [Suspect]
     Indication: ANXIETY
     Route: 048
     Dates: start: 20060101, end: 20090524
  3. VITAMINS [Concomitant]
  4. ATENOLOL [Concomitant]
  5. AMLODIPINE [Concomitant]
  6. QUINAPRIL [Concomitant]
  7. DIGOXIN [Concomitant]
  8. HYZAAR [Concomitant]
     Indication: HYPERTENSION
     Dosage: 1 DF = 50/12.5MG
  9. WELCHOL [Concomitant]
  10. GEMFIBROZIL [Concomitant]
  11. METFORMIN HCL [Concomitant]

REACTIONS (4)
  - ANXIETY [None]
  - EPISTAXIS [None]
  - HAEMATOCHEZIA [None]
  - SLEEP DISORDER [None]
